FAERS Safety Report 19539169 (Version 5)
Quarter: 2021Q3

REPORT INFORMATION
  Report Type: Other
  Country: KR (occurrence: KR)
  Receive Date: 20210714
  Receipt Date: 20210810
  Transmission Date: 20211014
  Serious: Yes (Hospitalization)
  Sender: FDA-Public Use
  Company Number: KR-ROCHE-2755563

PATIENT
  Age: 57 Year
  Sex: Female

DRUGS (7)
  1. TRASTUZUMAB EMTANSINE [Suspect]
     Active Substance: ADO-TRASTUZUMAB EMTANSINE
     Indication: BREAST CANCER
     Dosage: CONSECUTIVE DATE OF TREATMENT: 25/SEP/2020, 16/OCT/2020, 04/NOV/2020, 27/NOV/2020, 18/DEC/2020 AND 0
     Route: 042
     Dates: start: 20200904
  2. STILNOX CR [Concomitant]
     Active Substance: ZOLPIDEM TARTRATE
     Route: 048
     Dates: start: 20200904, end: 20200911
  3. LETROZOLE. [Concomitant]
     Active Substance: LETROZOLE
     Route: 048
     Dates: start: 20201028, end: 20201029
  4. LIPITOR [Concomitant]
     Active Substance: ATORVASTATIN CALCIUM
     Indication: DYSLIPIDAEMIA
     Route: 048
     Dates: start: 20201028, end: 20201029
  5. LETROZOLE. [Concomitant]
     Active Substance: LETROZOLE
     Indication: BREAST CANCER
     Route: 048
     Dates: start: 20200902
  6. CIRCADIN [Concomitant]
     Active Substance: MELATONIN
     Route: 048
     Dates: start: 20201218, end: 20201224
  7. LODIEN [Concomitant]
     Indication: HYPERTENSION
     Route: 048
     Dates: start: 2020

REACTIONS (9)
  - Hypoaesthesia [Recovering/Resolving]
  - Pain [Recovered/Resolved]
  - Muscle spasms [Recovering/Resolving]
  - Catheter site pain [Recovered/Resolved]
  - Catheter site erythema [Recovered/Resolved]
  - Fatigue [Recovering/Resolving]
  - Aspartate aminotransferase increased [Recovering/Resolving]
  - Alanine aminotransferase increased [Recovering/Resolving]
  - Herpes zoster [Recovering/Resolving]

NARRATIVE: CASE EVENT DATE: 20200925
